FAERS Safety Report 7992018-7 (Version None)
Quarter: 2011Q4

REPORT INFORMATION
  Report Type: 
  Country: None (occurrence: None)
  Receive Date: 20111219
  Receipt Date: 20110520
  Transmission Date: 20120403
  Serious: No
  Sender: FDA-Public Use
  Company Number: US-ASTRAZENECA-2011SE14465

PATIENT
  Age: 74 Year
  Sex: Male

DRUGS (2)
  1. CRESTOR [Suspect]
     Route: 048
     Dates: start: 20110301
  2. PRAVASTATIN [Concomitant]
     Route: 048

REACTIONS (4)
  - MUSCLE SPASMS [None]
  - DISORIENTATION [None]
  - ABNORMAL DREAMS [None]
  - NIGHTMARE [None]
